FAERS Safety Report 11156949 (Version 1)
Quarter: 2015Q2

REPORT INFORMATION
  Report Type: Report from Study
  Country: US (occurrence: US)
  Receive Date: 20150602
  Receipt Date: 20150602
  Transmission Date: 20150821
  Serious: No
  Sender: FDA-Public Use
  Company Number: US-ABBVIE-14P-163-1234473-00

PATIENT
  Age: 52 Year
  Sex: Female
  Weight: 47.22 kg

DRUGS (3)
  1. MARINOL [Suspect]
     Active Substance: DRONABINOL
     Indication: INCREASED APPETITE
     Route: 048
     Dates: start: 201312, end: 201403
  2. MARINOL [Suspect]
     Active Substance: DRONABINOL
     Indication: NAUSEA
  3. MARINOL [Suspect]
     Active Substance: DRONABINOL
     Indication: VOMITING

REACTIONS (6)
  - Vomiting [Not Recovered/Not Resolved]
  - Dehydration [Not Recovered/Not Resolved]
  - Retching [Not Recovered/Not Resolved]
  - Fall [Recovered/Resolved]
  - Hypotension [Not Recovered/Not Resolved]
  - Off label use [Unknown]

NARRATIVE: CASE EVENT DATE: 201404
